FAERS Safety Report 11462329 (Version 1)
Quarter: 2015Q3

REPORT INFORMATION
  Report Type: Spontaneous
  Country: US (occurrence: US)
  Receive Date: 20150831
  Receipt Date: 20150831
  Transmission Date: 20151125
  Serious: No
  Sender: FDA-Public Use
  Company Number: US-ELI_LILLY_AND_COMPANY-US201009006147

PATIENT
  Age: 55 Year
  Sex: Male

DRUGS (2)
  1. CYMBALTA [Suspect]
     Active Substance: DULOXETINE HYDROCHLORIDE
     Indication: ARTHRALGIA
     Dosage: 30 MG, DAILY (1/D)
  2. CYMBALTA [Suspect]
     Active Substance: DULOXETINE HYDROCHLORIDE
     Dosage: UNK, UNKNOWN
     Dates: end: 20100830

REACTIONS (15)
  - Suicidal ideation [Unknown]
  - Off label use [Recovered/Resolved]
  - Choking sensation [Not Recovered/Not Resolved]
  - Head discomfort [Not Recovered/Not Resolved]
  - Panic reaction [Not Recovered/Not Resolved]
  - Flushing [Not Recovered/Not Resolved]
  - Panic attack [Not Recovered/Not Resolved]
  - Feeling abnormal [Unknown]
  - Chest discomfort [Not Recovered/Not Resolved]
  - Paraesthesia [Not Recovered/Not Resolved]
  - Insomnia [Not Recovered/Not Resolved]
  - Nasal congestion [Not Recovered/Not Resolved]
  - Drug withdrawal syndrome [Not Recovered/Not Resolved]
  - Anxiety [Not Recovered/Not Resolved]
  - Dyspnoea [Not Recovered/Not Resolved]
